FAERS Safety Report 20454667 (Version 1)
Quarter: 2022Q1

REPORT INFORMATION
  Report Type: Spontaneous
  Country: US (occurrence: US)
  Receive Date: 20220210
  Receipt Date: 20220210
  Transmission Date: 20220423
  Serious: Yes (Other)
  Sender: FDA-Public Use
  Company Number: US-GLAXOSMITHKLINE- US2022GSK021335

PATIENT
  Sex: Male

DRUGS (8)
  1. ZANTAC [Suspect]
     Active Substance: RANITIDINE HYDROCHLORIDE
     Indication: Product used for unknown indication
     Dosage: UNK UNK, QD
     Route: 065
     Dates: start: 200001, end: 201812
  2. ZANTAC [Suspect]
     Active Substance: RANITIDINE HYDROCHLORIDE
     Dosage: UNK UNK, 1 - 2 TABS PER DAY
     Route: 065
     Dates: start: 200001, end: 201812
  3. ZANTAC [Suspect]
     Active Substance: RANITIDINE HYDROCHLORIDE
     Indication: Product used for unknown indication
     Dosage: UNK UNK, QD
     Route: 065
     Dates: start: 200001, end: 201812
  4. ZANTAC [Suspect]
     Active Substance: RANITIDINE HYDROCHLORIDE
     Dosage: UNK UNK, 1 - 2 TABS PER DAY
     Route: 065
     Dates: start: 200001, end: 201812
  5. RANITIDINE [Suspect]
     Active Substance: RANITIDINE
     Indication: Product used for unknown indication
     Dosage: UNK UNK, QD
     Route: 065
     Dates: start: 200001, end: 201812
  6. RANITIDINE [Suspect]
     Active Substance: RANITIDINE
     Dosage: UNK UNK, 1 - 2 TABS PER DAY
     Route: 065
     Dates: start: 200001, end: 201812
  7. RANITIDINE [Suspect]
     Active Substance: RANITIDINE
     Indication: Product used for unknown indication
     Dosage: UNK UNK, QD
     Route: 065
     Dates: start: 200001, end: 201812
  8. RANITIDINE [Suspect]
     Active Substance: RANITIDINE
     Dosage: UNK UNK, 1 - 2 TABS PER DAY
     Route: 065
     Dates: start: 200001, end: 201812

REACTIONS (1)
  - Renal cancer [Unknown]
